FAERS Safety Report 15767428 (Version 1)
Quarter: 2018Q4

REPORT INFORMATION
  Report Type: Spontaneous
  Country: US (occurrence: US)
  Receive Date: 20181227
  Receipt Date: 20181227
  Transmission Date: 20190205
  Serious: No
  Sender: FDA-Public Use
  Company Number: US-BAYER-2018-242444

PATIENT
  Age: 32 Year
  Sex: Female
  Weight: 82.99 kg

DRUGS (1)
  1. MIRALAX [Suspect]
     Active Substance: POLYETHYLENE GLYCOL 3350
     Dosage: 2 DF, QD

REACTIONS (3)
  - Extra dose administered [Unknown]
  - Dyspepsia [None]
  - Product use in unapproved indication [Unknown]
